FAERS Safety Report 18843685 (Version 2)
Quarter: 2021Q2

REPORT INFORMATION
  Report Type: Report from Study
  Country: CA (occurrence: CA)
  Receive Date: 20210203
  Receipt Date: 20210415
  Transmission Date: 20210717
  Serious: Yes (Hospitalization)
  Sender: FDA-Public Use
  Company Number: CA-EXELIXIS-CABO-20030098

PATIENT
  Age: 63 Year
  Sex: Male

DRUGS (14)
  1. FLORINEF ACETATE [Concomitant]
     Active Substance: FLUDROCORTISONE ACETATE
  2. HYDROMORPHONE [Concomitant]
     Active Substance: HYDROMORPHONE
  3. SYNTHROID [Concomitant]
     Active Substance: LEVOTHYROXINE SODIUM
  4. CABOMETYX [Suspect]
     Active Substance: CABOZANTINIB S-MALATE
     Dosage: 60 MG, QOD (ONCE DAILY EVERY SECOND DAY)
     Route: 048
     Dates: start: 20200604, end: 202007
  5. HUMULIN N [Concomitant]
     Active Substance: INSULIN HUMAN
  6. VITAMIN D [Concomitant]
     Active Substance: VITAMIN D NOS
  7. COLCHICINE. [Concomitant]
     Active Substance: COLCHICINE
  8. RELAXA [Concomitant]
  9. CORTEF [Concomitant]
     Active Substance: HYDROCORTISONE
  10. AMLODIPINE [Concomitant]
     Active Substance: AMLODIPINE BESYLATE
  11. CABOMETYX [Suspect]
     Active Substance: CABOZANTINIB S-MALATE
     Indication: RENAL CELL CARCINOMA
     Dosage: 60 MG, QD
     Route: 048
     Dates: start: 20200427
  12. ALLOPURINOL. [Concomitant]
     Active Substance: ALLOPURINOL
  13. JANUVIA [Concomitant]
     Active Substance: SITAGLIPTIN PHOSPHATE
  14. METFORMIN [Concomitant]
     Active Substance: METFORMIN HYDROCHLORIDE

REACTIONS (6)
  - Sensitive skin [Recovering/Resolving]
  - Malaise [Unknown]
  - Fatigue [Unknown]
  - Inappropriate schedule of product administration [Unknown]
  - Nasal discomfort [Recovering/Resolving]
  - Oral pain [Recovering/Resolving]

NARRATIVE: CASE EVENT DATE: 20200604
